FAERS Safety Report 11047196 (Version 1)
Quarter: 2015Q2

REPORT INFORMATION
  Report Type: Spontaneous
  Country: AT (occurrence: AT)
  Receive Date: 20150420
  Receipt Date: 20150420
  Transmission Date: 20150821
  Serious: Yes (Other)
  Sender: FDA-Public Use
  Company Number: AT-SA-2014SA174676

PATIENT
  Sex: Male

DRUGS (9)
  1. IRINOTECAN [Concomitant]
     Active Substance: IRINOTECAN
     Indication: COLON CANCER
     Dates: start: 20130522, end: 20130522
  2. ZALTRAP [Suspect]
     Active Substance: ZIV-AFLIBERCEPT
     Indication: COLON CANCER
     Route: 065
     Dates: start: 20130522, end: 20130522
  3. ZALTRAP [Suspect]
     Active Substance: ZIV-AFLIBERCEPT
     Indication: COLON CANCER
     Route: 065
     Dates: start: 20140506, end: 20140506
  4. IRINOTECAN [Concomitant]
     Active Substance: IRINOTECAN
     Indication: COLON CANCER
     Dates: start: 20140506, end: 20140506
  5. FLUOROURACIL. [Concomitant]
     Active Substance: FLUOROURACIL
     Indication: COLON CANCER
     Dates: start: 20140506, end: 20140506
  6. FLUOROURACIL. [Concomitant]
     Active Substance: FLUOROURACIL
     Indication: COLON CANCER
     Dates: start: 20130522, end: 20130522
  7. FOLINIC ACID [Concomitant]
     Active Substance: LEUCOVORIN
     Indication: COLON CANCER
     Dates: start: 20130522, end: 20130522
  8. FOLINIC ACID [Concomitant]
     Active Substance: LEUCOVORIN
     Indication: COLON CANCER
     Dates: start: 20140506, end: 20140506
  9. AVASTIN [Concomitant]
     Active Substance: BEVACIZUMAB
     Dates: start: 201409

REACTIONS (15)
  - Hypertension [Unknown]
  - Abdominal pain [Unknown]
  - Headache [Recovering/Resolving]
  - Leukopenia [Unknown]
  - Oropharyngeal pain [Unknown]
  - Palpitations [Unknown]
  - General physical health deterioration [Unknown]
  - Diarrhoea [Unknown]
  - Pruritus [Unknown]
  - Polyneuropathy [Not Recovered/Not Resolved]
  - Thrombocytopenia [Unknown]
  - Abdominal pain [Unknown]
  - Condition aggravated [Not Recovered/Not Resolved]
  - Tumour marker test [Unknown]
  - Chest pain [Unknown]

NARRATIVE: CASE EVENT DATE: 20130628
